FAERS Safety Report 17600473 (Version 1)
Quarter: 2020Q1

REPORT INFORMATION
  Report Type: Report from Study
  Country: US (occurrence: US)
  Receive Date: 20200330
  Receipt Date: 20200330
  Transmission Date: 20200409
  Serious: Yes (Death, Hospitalization)
  Sender: FDA-Public Use
  Company Number: US-JNJFOC-NSADSS2001025990

PATIENT
  Age: 32 Year
  Sex: Female
  Weight: 58.34 kg

DRUGS (14)
  1. CISAPRIDE [Suspect]
     Active Substance: CISAPRIDE
     Indication: GASTROOESOPHAGEAL REFLUX DISEASE
     Dosage: GASTROENTERAL USE
     Route: 050
     Dates: end: 20010810
  2. GABITRIL [Concomitant]
     Active Substance: TIAGABINE HYDROCHLORIDE
     Indication: EPILEPSY
     Dosage: GASTROENTERAL USE
     Route: 050
  3. MIACALCIN [Concomitant]
     Active Substance: CALCITONIN SALMON
     Indication: OSTEOPOROSIS
     Route: 045
  4. ALBUTEROL. [Concomitant]
     Active Substance: ALBUTEROL
     Indication: ASTHMA
     Dates: start: 20010726
  5. CELEXA [Concomitant]
     Active Substance: CITALOPRAM HYDROBROMIDE
     Indication: DEPRESSION
     Dosage: GASTROENTERAL USE
     Route: 050
  6. VIOXX [Concomitant]
     Active Substance: ROFECOXIB
     Indication: PAIN
     Dosage: GASTROENTERAL USE
     Route: 050
  7. IPRATROPIUM [Concomitant]
     Active Substance: IPRATROPIUM
     Indication: ASTHMA
     Dates: start: 20010726
  8. CISAPRIDE [Suspect]
     Active Substance: CISAPRIDE
     Indication: IMPAIRED GASTRIC EMPTYING
  9. PULMICORT TURBUHALER [Concomitant]
     Active Substance: BUDESONIDE
     Indication: ASTHMA
  10. CISAPRIDE [Suspect]
     Active Substance: CISAPRIDE
     Indication: OBSTRUCTION
  11. NEURONTIN [Concomitant]
     Active Substance: GABAPENTIN
     Indication: EPILEPSY
     Dosage: GASTROENTERAL USE
     Route: 050
     Dates: end: 20010810
  12. LEVOTHYROXINE. [Concomitant]
     Active Substance: LEVOTHYROXINE
     Indication: PRODUCT USED FOR UNKNOWN INDICATION
     Dosage: GASTROENTERAL USE
     Route: 050
  13. CISAPRIDE [Suspect]
     Active Substance: CISAPRIDE
     Indication: CONSTIPATION
  14. PEPCID [Concomitant]
     Active Substance: FAMOTIDINE
     Indication: GASTROINTESTINAL HAEMORRHAGE
     Dosage: GASTROENTERAL USE
     Route: 050
     Dates: start: 20010709

REACTIONS (5)
  - Sepsis [Fatal]
  - Anaemia [Not Recovered/Not Resolved]
  - Jaundice [Not Recovered/Not Resolved]
  - Multiple organ dysfunction syndrome [Fatal]
  - Thrombocytopenia [Not Recovered/Not Resolved]

NARRATIVE: CASE EVENT DATE: 20010802
